FAERS Safety Report 24386112 (Version 1)
Quarter: 2024Q4

REPORT INFORMATION
  Report Type: Spontaneous
  Country: US (occurrence: None)
  Receive Date: 20241001
  Receipt Date: 20241001
  Transmission Date: 20250115
  Serious: Yes (Hospitalization)
  Sender: Public
  Company Number: None

PATIENT
  Age: 5 Year
  Sex: Male
  Weight: 18.5 kg

DRUGS (1)
  1. ETHOSUXIMIDE [Suspect]
     Active Substance: ETHOSUXIMIDE
     Indication: Petit mal epilepsy
     Dosage: OTHER STRENGTH : 6.7 UGM/KG;?FREQUENCY : TWICE A DAY;?
     Route: 048

REACTIONS (1)
  - Raynaud^s phenomenon [None]

NARRATIVE: CASE EVENT DATE: 20240512
